FAERS Safety Report 23058244 (Version 1)
Quarter: 2023Q4

REPORT INFORMATION
  Report Type: Spontaneous
  Country: US (occurrence: None)
  Receive Date: 20231012
  Receipt Date: 20231012
  Transmission Date: 20240110
  Serious: Yes (Hospitalization)
  Sender: FDA-Public Use
  Company Number: US-FARMAPROD-202310-2931

PATIENT
  Sex: Female

DRUGS (17)
  1. OXERVATE [Suspect]
     Active Substance: CENEGERMIN-BKBJ
     Indication: Neurotrophic keratopathy
     Route: 047
     Dates: start: 20230829
  2. ALPHA LIPOIC ACID [Concomitant]
     Active Substance: .ALPHA.-LIPOIC ACID
  3. LORATADINE [Concomitant]
     Active Substance: LORATADINE
  4. METHENAMINE HIPPURATE [Concomitant]
     Active Substance: METHENAMINE HIPPURATE
  5. EYE WASH [Concomitant]
     Dosage: IRRIGATION SOLUTION
  6. BUPRENORPHINE [Concomitant]
     Active Substance: BUPRENORPHINE
     Dosage: 10 MCG/HR TRANSDERMAL WEEKLY PATCH.
  7. FENOFIBRATE [Concomitant]
     Active Substance: FENOFIBRATE
  8. DIGOXIN [Concomitant]
     Active Substance: DIGOXIN
  9. PANTOPRAZOLE SODIUM [Concomitant]
     Active Substance: PANTOPRAZOLE SODIUM
  10. GABAPENTIN [Concomitant]
     Active Substance: GABAPENTIN
  11. OXYCODONE AND ACETAMINOPHEN [Concomitant]
     Active Substance: ACETAMINOPHEN\OXYCODONE HYDROCHLORIDE
  12. LIDOCAINE [Concomitant]
     Active Substance: LIDOCAINE
  13. COMBIGAN [Concomitant]
     Active Substance: BRIMONIDINE TARTRATE\TIMOLOL MALEATE
     Dosage: 0.2%-0.5%
  14. LUMIGAN [Concomitant]
     Active Substance: BIMATOPROST
  15. RESTASIS [Concomitant]
     Active Substance: CYCLOSPORINE
  16. ELIQUIS [Concomitant]
     Active Substance: APIXABAN
  17. ATORVASTATIN CALCIUM [Concomitant]
     Active Substance: ATORVASTATIN CALCIUM

REACTIONS (2)
  - Hospitalisation [Unknown]
  - Product administration error [Unknown]
